FAERS Safety Report 6895656-8 (Version None)
Quarter: 2010Q3

REPORT INFORMATION
  Report Type: 
  Country: None (occurrence: None)
  Receive Date: 20100802
  Receipt Date: 20100722
  Transmission Date: 20110219
  Serious: Yes (Other)
  Sender: FDA-Public Use
  Company Number: US-SANOFI-AVENTIS-2010SA043799

PATIENT
  Age: 55 Year
  Sex: Male

DRUGS (2)
  1. LANTUS [Suspect]
     Indication: INSULIN-REQUIRING TYPE 2 DIABETES MELLITUS
     Dosage: DOSE:21 UNIT(S)
     Route: 058
  2. OPTICLICK [Suspect]
     Indication: INSULIN-REQUIRING TYPE 2 DIABETES MELLITUS

REACTIONS (2)
  - EYE HAEMORRHAGE [None]
  - RETINAL DETACHMENT [None]
